FAERS Safety Report 4817538-5 (Version None)
Quarter: 2005Q4

REPORT INFORMATION
  Report Type: 
  Country: None (occurrence: None)
  Receive Date: 20051031
  Receipt Date: 20051018
  Transmission Date: 20060501
  Serious: Yes (Other)
  Sender: FDA-Public Use
  Company Number: 2005144072

PATIENT
  Age: 76 Year
  Sex: Male

DRUGS (1)
  1. SOBELIN (CLINDAMYCIN HYDROCHLORIDE) [Suspect]
     Indication: ANTIBIOTIC PROPHYLAXIS
     Dosage: 900 MG (300 MG, TID) ORAL
     Route: 048

REACTIONS (1)
  - RASH GENERALISED [None]
